FAERS Safety Report 6137359-3 (Version None)
Quarter: 2009Q1

REPORT INFORMATION
  Report Type: 
  Country: None (occurrence: None)
  Receive Date: 20090330
  Receipt Date: 20090320
  Transmission Date: 20090719
  Serious: No
  Sender: FDA-Public Use
  Company Number: US-B.I. PHARMACEUTICALS,INC./RIDGEFIELD-2009-BP-03564BP

PATIENT
  Sex: Female

DRUGS (3)
  1. COMBIVENT [Suspect]
     Indication: EMPHYSEMA
     Dosage: 8PUF
     Route: 055
     Dates: start: 20090101
  2. FOSAMAX [Concomitant]
     Indication: OSTEOPOROSIS
  3. SYNTHROID [Concomitant]
     Indication: THYROID DISORDER

REACTIONS (6)
  - ABDOMINAL DISTENSION [None]
  - EATING DISORDER [None]
  - FEELING JITTERY [None]
  - GASTRITIS [None]
  - JOINT SWELLING [None]
  - RIB FRACTURE [None]
